FAERS Safety Report 11091016 (Version 1)
Quarter: 2015Q2

REPORT INFORMATION
  Report Type: Spontaneous
  Country: US (occurrence: None)
  Receive Date: 20150504
  Receipt Date: 20150504
  Transmission Date: 20150821
  Serious: Yes (Life-Threatening, Hospitalization)
  Sender: FDA-Public Use
  Company Number: None

PATIENT
  Age: 44 Year
  Sex: Female
  Weight: 83.92 kg

DRUGS (6)
  1. ZYRTEC [Concomitant]
     Active Substance: CETIRIZINE HYDROCHLORIDE
  2. NEXIUM [Concomitant]
     Active Substance: ESOMEPRAZOLE MAGNESIUM
  3. LEXAPRO [Concomitant]
     Active Substance: ESCITALOPRAM OXALATE
  4. CALCIUM GUMMIES [Concomitant]
  5. TRICOR [Suspect]
     Active Substance: FENOFIBRATE
     Indication: BLOOD CHOLESTEROL
     Dosage: 1 A DAY  ONCE DAILY TAKEN BY MOUTH
     Route: 048
     Dates: start: 20150401, end: 20150407
  6. MOTRIN [Concomitant]
     Active Substance: IBUPROFEN

REACTIONS (5)
  - Blood pressure increased [None]
  - Anaphylactic shock [None]
  - Liver function test abnormal [None]
  - Pain in extremity [None]
  - Chest discomfort [None]

NARRATIVE: CASE EVENT DATE: 20150408
